FAERS Safety Report 19868046 (Version 3)
Quarter: 2021Q4

REPORT INFORMATION
  Report Type: Spontaneous
  Country: US (occurrence: US)
  Receive Date: 20210922
  Receipt Date: 20211231
  Transmission Date: 20220303
  Serious: No
  Sender: FDA-Public Use
  Company Number: US-PFIZER INC-202101236145

PATIENT
  Age: 96 Year
  Sex: Female

DRUGS (1)
  1. LYRICA [Suspect]
     Active Substance: PREGABALIN
     Indication: Trigeminal neuralgia
     Dosage: 75 MG, 3X/DAY
     Route: 048
     Dates: start: 20210901

REACTIONS (1)
  - Loss of personal independence in daily activities [Unknown]
